FAERS Safety Report 9298192 (Version 1)
Quarter: 2013Q2

REPORT INFORMATION
  Report Type: Spontaneous
  Country: DE (occurrence: DE)
  Receive Date: 20130520
  Receipt Date: 20130520
  Transmission Date: 20140414
  Serious: Yes (Life-Threatening, Hospitalization)
  Sender: FDA-Public Use
  Company Number: DE-BANPHARM-20131340

PATIENT
  Age: 30 Year
  Sex: Male
  Weight: 70 kg

DRUGS (4)
  1. IBUPROFEN UNKNOWN PRODUCT [Suspect]
     Indication: PAIN
     Dosage: 400 MG,
     Route: 048
  2. NOVALGIN [Suspect]
     Indication: PYREXIA
     Dosage: 500 MG,
     Route: 048
  3. CEFPODOXIME [Suspect]
     Route: 048
     Dates: start: 20130215
  4. METHADONE [Suspect]
     Dosage: QD,
     Route: 048

REACTIONS (1)
  - Agranulocytosis [Recovered/Resolved]
